FAERS Safety Report 7466312-2 (Version None)
Quarter: 2011Q2

REPORT INFORMATION
  Report Type: 
  Country: None (occurrence: None)
  Receive Date: 20110509
  Receipt Date: 20100726
  Transmission Date: 20111010
  Serious: No
  Sender: FDA-Public Use
  Company Number: US-ALEXION-A201000882

PATIENT
  Sex: Female

DRUGS (12)
  1. SYNTHROID [Concomitant]
     Indication: THYROIDECTOMY
     Dosage: UNK
     Route: 048
  2. FOSAMAX [Concomitant]
     Dosage: UNK
     Route: 048
  3. ALLOPURINOL [Concomitant]
     Indication: BLOOD URIC ACID INCREASED
     Dosage: UNK
     Route: 048
  4. IRON [Concomitant]
     Dosage: 1-2 QD
     Route: 048
  5. CALCIUM [Concomitant]
     Dosage: UNK
     Route: 048
  6. SOLIRIS [Suspect]
     Dosage: 900 MG, Q2W
     Route: 042
  7. HYDROCHLOROTHIAZIDE [Concomitant]
     Indication: FLUID RETENTION
     Dosage: UNK
     Route: 048
  8. SOLIRIS [Suspect]
     Indication: PAROXYSMAL NOCTURNAL HAEMOGLOBINURIA
     Dosage: 600 MG, QW
     Route: 042
     Dates: start: 20100507
  9. PREDNISONE [Concomitant]
     Indication: PAROXYSMAL NOCTURNAL HAEMOGLOBINURIA
     Dosage: 0.5 MG, QD
     Route: 048
  10. FOLIC ACID [Concomitant]
     Indication: PAROXYSMAL NOCTURNAL HAEMOGLOBINURIA
     Dosage: UNK
     Route: 048
  11. BUMEX [Concomitant]
     Indication: FLUID RETENTION
     Dosage: UNK
     Route: 048
  12. VITAMIN A [Concomitant]
     Dosage: UNK
     Route: 048

REACTIONS (3)
  - VASCULITIS [None]
  - ERYTHEMA [None]
  - ABDOMINAL PAIN [None]
